FAERS Safety Report 13335293 (Version 1)
Quarter: 2017Q1

REPORT INFORMATION
  Report Type: Spontaneous
  Country: US (occurrence: US)
  Receive Date: 20170314
  Receipt Date: 20170314
  Transmission Date: 20170428
  Serious: No
  Sender: FDA-Public Use
  Company Number: US-PFIZER INC-2017110557

PATIENT
  Age: 72 Year
  Sex: Male
  Weight: 98 kg

DRUGS (1)
  1. AZITHROMYCIN ANHYDROUS. [Suspect]
     Active Substance: AZITHROMYCIN ANHYDROUS
     Dosage: 500 MG, ONCE A DAY
     Route: 042
     Dates: start: 20170309

REACTIONS (1)
  - Infusion site pain [Unknown]
